FAERS Safety Report 8677459 (Version 2)
Quarter: 2012Q4

REPORT INFORMATION
  Report Type: 
  Country: AU (occurrence: AU)
  Receive Date: 20120723
  Receipt Date: 20120829
  Transmission Date: 20130627
  Serious: Yes (Hospitalization)
  Sender: FDA-Public Use
  Company Number: PHHY2012AU061885

PATIENT
  Age: 46 Year
  Sex: Male

DRUGS (2)
  1. CLOZARIL [Suspect]
     Dosage: 900 mg
     Route: 048
     Dates: start: 19931007
  2. CLOZARIL [Suspect]
     Dosage: 900 mg, UNK
     Route: 048
     Dates: start: 19931009

REACTIONS (1)
  - Cervical myelopathy [Recovering/Resolving]
